FAERS Safety Report 4331356-6 (Version None)
Quarter: 2004Q1

REPORT INFORMATION
  Report Type: 
  Country: None (occurrence: None)
  Receive Date: 20040329
  Receipt Date: 20040319
  Transmission Date: 20041129
  Serious: Yes (Death, Hospitalization)
  Sender: FDA-Public Use
  Company Number: US-JNJFOC-20040301113

PATIENT
  Age: 53 Year
  Sex: Female
  Weight: 91 kg

DRUGS (16)
  1. DOXIL (DOXORUBICIN HYDROCHLORIDE) LIPOSOME [Suspect]
     Indication: OVARIAN CANCER
     Dosage: 20 MG/M2, 1 IN 14 DAY, INTRAVENOUS
     Route: 042
     Dates: start: 20040102, end: 20040213
  2. GEMZAR [Suspect]
     Indication: OVARIAN CANCER
     Dosage: 1500 MG/M2, 1 IN 14 DAY, INTRAVENOUS
     Route: 042
     Dates: start: 20040102, end: 20040213
  3. ZOFRAN [Concomitant]
  4. CIPRO [Concomitant]
  5. MORPHINE SULFATE [Concomitant]
  6. LOVENOX [Concomitant]
  7. BENZONATATE (BENZONATATE) [Concomitant]
  8. ATIVAN [Concomitant]
  9. MS CONTIN [Concomitant]
  10. REGLAN [Concomitant]
  11. AMBIEN [Concomitant]
  12. HEPARIN [Concomitant]
  13. AVELOX [Concomitant]
  14. SODIUM CHLORIDE [Concomitant]
  15. SENOKOT [Concomitant]
  16. MIRALAX [Concomitant]

REACTIONS (20)
  - ACUTE RESPIRATORY DISTRESS SYNDROME [None]
  - ASTHENIA [None]
  - BLOOD ALBUMIN DECREASED [None]
  - BLOOD CALCIUM DECREASED [None]
  - BLOOD CHLORIDE DECREASED [None]
  - BLOOD SODIUM DECREASED [None]
  - DIAPHRAGMALGIA [None]
  - HAEMATOCRIT DECREASED [None]
  - HAEMOGLOBIN DECREASED [None]
  - LUNG NEOPLASM [None]
  - MALIGNANT NEOPLASM PROGRESSION [None]
  - METASTASES TO LUNG [None]
  - OVARIAN CANCER [None]
  - PERICARDIAL EFFUSION [None]
  - PLATELET COUNT DECREASED [None]
  - PLEURAL EFFUSION [None]
  - PNEUMONIA [None]
  - PROTEIN TOTAL DECREASED [None]
  - PULMONARY OEDEMA [None]
  - TACHYCARDIA [None]
